FAERS Safety Report 25510123 (Version 1)
Quarter: 2025Q3

REPORT INFORMATION
  Report Type: Spontaneous
  Country: EU (occurrence: EU)
  Receive Date: 20250703
  Receipt Date: 20250703
  Transmission Date: 20251020
  Serious: Yes (Congenital Anomaly)
  Sender: TEVA
  Company Number: None

PATIENT
  Sex: Female
  Weight: 1.24 kg

DRUGS (2)
  1. BISOPROLOL [Suspect]
     Active Substance: BISOPROLOL
     Indication: Restrictive cardiomyopathy
     Route: 064
     Dates: start: 20240909, end: 20250409
  2. FUROSEMIDE [Suspect]
     Active Substance: FUROSEMIDE
     Indication: Restrictive cardiomyopathy
     Route: 064
     Dates: start: 20240909, end: 20250409

REACTIONS (2)
  - Poland^s syndrome [Not Recovered/Not Resolved]
  - Maternal exposure during pregnancy [Not Recovered/Not Resolved]

NARRATIVE: CASE EVENT DATE: 20250507
